FAERS Safety Report 23854899 (Version 1)
Quarter: 2024Q2

REPORT INFORMATION
  Report Type: Spontaneous
  Country: US (occurrence: US)
  Receive Date: 20240514
  Receipt Date: 20240514
  Transmission Date: 20240715
  Serious: No
  Sender: FDA-Public Use
  Company Number: US-ANIPHARMA-2024-US-021134

PATIENT
  Sex: Male

DRUGS (2)
  1. CORTICOTROPIN [Suspect]
     Active Substance: CORTICOTROPIN
     Indication: Sarcoidosis
     Dosage: 80 UNITS TWICE A WEEK
     Route: 058
     Dates: start: 202312
  2. cbd supplements [Concomitant]

REACTIONS (8)
  - Drug ineffective [Not Recovered/Not Resolved]
  - Insomnia [Unknown]
  - Chest discomfort [Unknown]
  - Somnolence [Unknown]
  - Erythema [Unknown]
  - Pruritus [Unknown]
  - Arthralgia [Not Recovered/Not Resolved]
  - Condition aggravated [Not Recovered/Not Resolved]
